FAERS Safety Report 7650110-0 (Version None)
Quarter: 2011Q3

REPORT INFORMATION
  Report Type: 
  Country: None (occurrence: None)
  Receive Date: 20110719
  Receipt Date: 20100927
  Transmission Date: 20111222
  Serious: Yes (Other)
  Sender: FDA-Public Use
  Company Number: 163-50794-10100155

PATIENT

DRUGS (2)
  1. ERLOTINIB HYDROCHLORIDE [Suspect]
     Indication: NEOPLASM
     Dosage: 150 MG
  2. VIDAZA [Suspect]
     Indication: NEOPLASM
     Dosage: 75-100 MG/METER SQUARED, DAILY X 1,2,3, OR 4 DAYS EVERY 2 WEEKS, IV ; 100 MG/M2, DAILY X 4 DAYS
     Route: 042

REACTIONS (14)
  - VOMITING [None]
  - NEUTROPENIA [None]
  - TRANSAMINASES INCREASED [None]
  - NEUTROPENIC SEPSIS [None]
  - EYE INFECTION [None]
  - PNEUMONITIS [None]
  - DYSGEUSIA [None]
  - NAUSEA [None]
  - URTICARIA [None]
  - RASH [None]
  - DIARRHOEA [None]
  - HYPOKALAEMIA [None]
  - FATIGUE [None]
  - STOMATITIS [None]
